FAERS Safety Report 22530342 (Version 1)
Quarter: 2023Q2

REPORT INFORMATION
  Report Type: Report from Study
  Country: US (occurrence: US)
  Receive Date: 20230607
  Receipt Date: 20230607
  Transmission Date: 20230721
  Serious: Yes (Other)
  Sender: FDA-Public Use
  Company Number: US-ABBVIE-4758597

PATIENT
  Sex: Female
  Weight: 66.224 kg

DRUGS (5)
  1. HUMIRA [Suspect]
     Active Substance: ADALIMUMAB
     Indication: Rheumatoid arthritis
     Route: 058
  2. RINVOQ [Suspect]
     Active Substance: UPADACITINIB
     Indication: Osteoarthritis
     Route: 048
     Dates: end: 20230526
  3. LEVOTHYROXINE [Concomitant]
     Active Substance: LEVOTHYROXINE
     Indication: Thyroid disorder
  4. HYDROCHLOROTHIAZIDE [Concomitant]
     Active Substance: HYDROCHLOROTHIAZIDE
     Indication: Chronic kidney disease
  5. SINGULAIR [Concomitant]
     Active Substance: MONTELUKAST SODIUM
     Indication: Sinus disorder

REACTIONS (5)
  - Chronic kidney disease [Unknown]
  - Therapeutic product effect incomplete [Unknown]
  - Illness [Recovered/Resolved]
  - Illness [Recovered/Resolved]
  - COVID-19 [Recovered/Resolved]

NARRATIVE: CASE EVENT DATE: 20210101
